FAERS Safety Report 12005861 (Version 2)
Quarter: 2016Q2

REPORT INFORMATION
  Report Type: Spontaneous
  Country: US (occurrence: US)
  Receive Date: 20160205
  Receipt Date: 20160602
  Transmission Date: 20160815
  Serious: No
  Sender: FDA-Public Use
  Company Number: US-CELGENEUS-USA-2016020263

PATIENT
  Age: 20 Year
  Sex: Female

DRUGS (4)
  1. SCALP OIL [Concomitant]
     Indication: PRODUCT USED FOR UNKNOWN INDICATION
     Route: 065
  2. DERMA SMOOTHE [Concomitant]
     Indication: SEBORRHOEIC DERMATITIS
     Route: 061
     Dates: start: 20141030
  3. OTEZLA [Suspect]
     Active Substance: APREMILAST
     Indication: PSORIASIS
     Dosage: 60 MILLIGRAM
     Route: 048
     Dates: start: 20150701
  4. EPICERAM [Concomitant]
     Indication: DRY SKIN
     Route: 061
     Dates: start: 20141215

REACTIONS (2)
  - Diarrhoea [Not Recovered/Not Resolved]
  - Nausea [Not Recovered/Not Resolved]

NARRATIVE: CASE EVENT DATE: 20150701
